FAERS Safety Report 6449968-2 (Version None)
Quarter: 2009Q4

REPORT INFORMATION
  Report Type: 
  Country: None (occurrence: None)
  Receive Date: 20091120
  Receipt Date: 20091120
  Transmission Date: 20100525
  Serious: Yes (Other)
  Sender: FDA-Public Use
  Company Number: None

PATIENT
  Age: 23 Year
  Sex: Female
  Weight: 77.1115 kg

DRUGS (1)
  1. MIRENA [Suspect]
     Indication: CONTRACEPTION
     Dosage: IUD VAG
     Route: 067
     Dates: start: 20090123, end: 20091101

REACTIONS (2)
  - DRUG INEFFECTIVE [None]
  - POSTPARTUM DEPRESSION [None]
